FAERS Safety Report 25691415 (Version 4)
Quarter: 2025Q4

REPORT INFORMATION
  Report Type: Spontaneous
  Country: EU (occurrence: EU)
  Receive Date: 20250818
  Receipt Date: 20251003
  Transmission Date: 20260118
  Serious: Yes (Other)
  Sender: PFIZER
  Company Number: EU-MLMSERVICE-20250806-PI601118-00271-1

PATIENT
  Age: 14 Year
  Sex: Male

DRUGS (9)
  1. DAUNORUBICIN HYDROCHLORIDE [Suspect]
     Active Substance: DAUNORUBICIN HYDROCHLORIDE
     Indication: B precursor type acute leukaemia
     Dosage: INDUCTION 1A (30 MG/M2/DOSE X 4)
  2. DAUNORUBICIN HYDROCHLORIDE [Suspect]
     Active Substance: DAUNORUBICIN HYDROCHLORIDE
     Dosage: INDUCTION 1A (3RD DNR: 1/2 DOSE) X 3
  3. METHOTREXATE SODIUM [Suspect]
     Active Substance: METHOTREXATE SODIUM
     Indication: B precursor type acute leukaemia
     Dosage: INDUCTION 1A (X 3)
     Route: 037
  4. PREDNISONE [Suspect]
     Active Substance: PREDNISONE
     Indication: B precursor type acute leukaemia
     Dosage: INDUCTION 1A
  5. VINCRISTINE SULFATE [Suspect]
     Active Substance: VINCRISTINE SULFATE
     Indication: B precursor type acute leukaemia
     Dosage: INDUCTION 1A (1.5MG/M2/DOSE X 4)
  6. PEGASPARGASE [Suspect]
     Active Substance: PEGASPARGASE
     Indication: B precursor type acute leukaemia
     Dosage: (2500 IU/M2/DOSE) X 2
  7. PEGASPARGASE [Suspect]
     Active Substance: PEGASPARGASE
     Dosage: INDUCTION 1A (1000 IU/M2/DOSE)
  8. ELEXACAFTOR\IVACAFTOR\TEZACAFTOR [Concomitant]
     Active Substance: ELEXACAFTOR\IVACAFTOR\TEZACAFTOR
     Indication: Cystic fibrosis
     Dosage: FOR 1 YEAR AT THE TIME OF ALL DIAGNOSIS
  9. KALYDECO [Concomitant]
     Active Substance: IVACAFTOR
     Indication: Cystic fibrosis
     Dosage: FOR 1 YEAR AT THE TIME OF ALL DIAGNOSIS

REACTIONS (4)
  - Pneumonia fungal [Unknown]
  - Neutropenia [Unknown]
  - Steroid diabetes [Unknown]
  - Device related thrombosis [Unknown]
